FAERS Safety Report 4374026-0 (Version None)
Quarter: 2004Q2

REPORT INFORMATION
  Report Type: 
  Country: None (occurrence: None)
  Receive Date: 20040607
  Receipt Date: 20040526
  Transmission Date: 20050107
  Serious: Yes (Other)
  Sender: FDA-Public Use
  Company Number: PHEH2004US05880

PATIENT
  Age: 72 Year
  Sex: Male

DRUGS (3)
  1. LOTREL [Suspect]
     Dosage: 10 MG AMLOD/20 MG BENAZ QD
     Dates: start: 20020101
  2. NORVASC [Suspect]
     Dates: start: 20020101
  3. DIOVAN HCT [Concomitant]

REACTIONS (7)
  - BALANCE DISORDER [None]
  - BLOOD PRESSURE DECREASED [None]
  - CONVULSION [None]
  - DIFFICULTY IN WALKING [None]
  - EYE MOVEMENT DISORDER [None]
  - SYNCOPE [None]
  - TREMOR [None]
